FAERS Safety Report 14034380 (Version 1)
Quarter: 2017Q4

REPORT INFORMATION
  Report Type: Spontaneous
  Country: US (occurrence: US)
  Receive Date: 20171003
  Receipt Date: 20171003
  Transmission Date: 20180321
  Serious: Yes (Other)
  Sender: FDA-Public Use
  Company Number: US-JNJFOC-20170925916

PATIENT
  Sex: Male

DRUGS (1)
  1. DURAGESIC [Suspect]
     Active Substance: FENTANYL
     Indication: PRODUCT USED FOR UNKNOWN INDICATION
     Route: 062

REACTIONS (5)
  - Gait inability [Unknown]
  - Neoplasm malignant [Recovering/Resolving]
  - Aphasia [Unknown]
  - Drug dispensing error [Unknown]
  - Malaise [Unknown]

NARRATIVE: CASE EVENT DATE: 20061229
